FAERS Safety Report 20620071 (Version 1)
Quarter: 2022Q1

REPORT INFORMATION
  Report Type: Spontaneous
  Country: US (occurrence: None)
  Receive Date: 20220321
  Receipt Date: 20220321
  Transmission Date: 20220423
  Serious: Yes (Hospitalization)
  Sender: FDA-Public Use
  Company Number: None

PATIENT
  Sex: Male

DRUGS (13)
  1. ACTEMRA [Suspect]
     Active Substance: TOCILIZUMAB
     Indication: Osteoarthritis
     Dosage: OTHER QUANTITY : 162MG/0.9ML;?FREQUENCY : WEEKLY;?
     Route: 058
     Dates: start: 20201202
  2. ASPIRIN LOW TAB [Concomitant]
  3. BRILINTA [Concomitant]
     Active Substance: TICAGRELOR
  4. BUPROPION TAB [Concomitant]
  5. CRESTOR TAB [Concomitant]
  6. DULOXETINE HYDROCHLORIDE [Concomitant]
     Active Substance: DULOXETINE HYDROCHLORIDE
  7. ENTRESTO TAB [Concomitant]
  8. GABAPENTIN TAB [Concomitant]
  9. LEVOTHYROXIN TAB [Concomitant]
  10. PREDNISONE [Concomitant]
     Active Substance: PREDNISONE
  11. TESTOSTERONE POW CYPIONAT [Concomitant]
  12. TOPROL XL TAB [Concomitant]
  13. ULORIC TAB [Concomitant]

REACTIONS (2)
  - Therapy interrupted [None]
  - Hospitalisation [None]
